FAERS Safety Report 7477938-4 (Version None)
Quarter: 2011Q2

REPORT INFORMATION
  Report Type: 
  Country: None (occurrence: None)
  Receive Date: 20110513
  Receipt Date: 20110506
  Transmission Date: 20111010
  Serious: Yes (Hospitalization)
  Sender: FDA-Public Use
  Company Number: DE-TEVA-277555GER

PATIENT
  Age: 77 Year
  Sex: Female
  Weight: 100 kg

DRUGS (14)
  1. CEFUROXIME [Suspect]
     Indication: INFECTION PROPHYLAXIS
     Route: 042
     Dates: start: 20100329, end: 20100407
  2. OXYGESIC AKUT [Concomitant]
     Indication: PAIN
     Dosage: MAX. 6 CAPSULES AS REQUIRED/DAY
     Route: 048
     Dates: start: 20100329, end: 20100329
  3. MCP [Concomitant]
     Indication: NAUSEA
     Route: 048
     Dates: start: 20100404, end: 20100409
  4. PANTOPRAZOLE [Interacting]
     Indication: PROPHYLAXIS AGAINST GASTROINTESTINAL ULCER
     Route: 048
     Dates: start: 20100325
  5. OXYGESIC 10 MG [Concomitant]
     Indication: PAIN
     Dosage: 20 MILLIGRAM;
     Route: 048
     Dates: start: 20100329, end: 20100404
  6. ACETAMINOPHEN [Concomitant]
     Indication: PAIN
     Route: 048
     Dates: start: 20100329, end: 20100329
  7. ENAHEXAL 20 MG [Concomitant]
     Indication: HYPERTENSION
     Dosage: 10 MILLIGRAM;
     Route: 048
     Dates: end: 20100409
  8. HCT-BETA 25 [Concomitant]
     Indication: HYPERTENSION
     Route: 048
     Dates: end: 20100502
  9. L-THYROXIN 150 [Concomitant]
     Indication: HYPOTHYROIDISM
     Dosage: 150 MICROGRAM;
     Route: 048
  10. ARCOXIA 90MG [Concomitant]
     Indication: PAIN
     Dosage: 90 MILLIGRAM;
     Route: 048
     Dates: start: 20100329, end: 20100409
  11. VOLTAREN [Concomitant]
     Indication: PAIN
     Dosage: 150 MILLIGRAM;
     Route: 048
     Dates: start: 20050101, end: 20090328
  12. MONO-EMBOLEX 3000IU [Concomitant]
     Indication: THROMBOSIS PROPHYLAXIS
     Dosage: 3000 IU (INTERNATIONAL UNIT);
     Route: 058
     Dates: start: 20100328, end: 20100427
  13. AMLODIPIN 5MG [Concomitant]
     Indication: HYPERTENSION
     Route: 048
     Dates: start: 20091101
  14. METFORMIN 850 [Concomitant]
     Indication: DIABETES MELLITUS
     Route: 048
     Dates: end: 20100409

REACTIONS (2)
  - PSEUDOMEMBRANOUS COLITIS [None]
  - DRUG INTERACTION [None]
